FAERS Safety Report 15980293 (Version 3)
Quarter: 2019Q1

REPORT INFORMATION
  Report Type: Spontaneous
  Country: TR (occurrence: TR)
  Receive Date: 20190219
  Receipt Date: 20190320
  Transmission Date: 20190418
  Serious: Yes (Hospitalization)
  Sender: FDA-Public Use
  Company Number: PHHY2019TR036421

PATIENT
  Sex: Male

DRUGS (2)
  1. CERTICAN [Suspect]
     Active Substance: EVEROLIMUS
     Dosage: UNK UNK, TID
     Route: 048
  2. CERTICAN [Suspect]
     Active Substance: EVEROLIMUS
     Indication: TUBEROUS SCLEROSIS COMPLEX
     Dosage: UNK UNK, BID
     Route: 048

REACTIONS (3)
  - Product use in unapproved indication [Unknown]
  - Product supply issue [Recovered/Resolved]
  - Drug ineffective [Recovered/Resolved]
